FAERS Safety Report 7802005-7 (Version None)
Quarter: 2011Q4

REPORT INFORMATION
  Report Type: 
  Country: None (occurrence: None)
  Receive Date: 20111007
  Receipt Date: 20111003
  Transmission Date: 20120403
  Serious: Yes (Hospitalization)
  Sender: FDA-Public Use
  Company Number: PHEH2011US05306

PATIENT
  Sex: Female
  Weight: 75 kg

DRUGS (8)
  1. LISINOPRIL [Concomitant]
     Dosage: 10 MG, UNK
  2. ZOLPIDEM [Concomitant]
     Dosage: 10 MG, UNK
  3. LASIX-K [Concomitant]
  4. PROCRIT [Concomitant]
     Dosage: 2000 U/ML, UNK
  5. CLARITIN [Concomitant]
     Dosage: 10 MG, QD
     Route: 048
  6. AMBIEN CR [Concomitant]
     Dosage: 6.5, QD, PNR
     Route: 048
  7. EXJADE [Suspect]
     Indication: IRON OVERLOAD
  8. EXJADE [Suspect]
     Indication: MYELODYSPLASTIC SYNDROME
     Dosage: 1500 MG, DAILY
     Route: 048
     Dates: start: 20110308

REACTIONS (2)
  - SUPRAVENTRICULAR TACHYCARDIA [None]
  - HEART RATE INCREASED [None]
